FAERS Safety Report 8604962-8 (Version None)
Quarter: 2012Q3

REPORT INFORMATION
  Report Type: 
  Country: None (occurrence: None)
  Receive Date: 20120820
  Receipt Date: 20120815
  Transmission Date: 20120928
  Serious: Yes (Other)
  Sender: FDA-Public Use
  Company Number: CN-PFIZER INC-2012198742

PATIENT
  Age: 70 Year
  Sex: Male
  Weight: 60 kg

DRUGS (2)
  1. SODIUM CHLORIDE [Suspect]
     Indication: LUNG INFECTION
     Dosage: 100 ML, 1X/DAY
     Route: 041
     Dates: start: 20090601, end: 20090601
  2. PIPERACILLIN/TAZOBACTAM [Suspect]
     Indication: LUNG INFECTION
     Dosage: 4.5 G, 1X/DAY
     Route: 041
     Dates: start: 20090601, end: 20090601

REACTIONS (3)
  - BLOOD PRESSURE DECREASED [None]
  - OXYGEN SATURATION DECREASED [None]
  - CHILLS [None]
